FAERS Safety Report 7447539-2 (Version None)
Quarter: 2011Q2

REPORT INFORMATION
  Report Type: 
  Country: None (occurrence: None)
  Receive Date: 20110429
  Receipt Date: 20110128
  Transmission Date: 20111010
  Serious: No
  Sender: FDA-Public Use
  Company Number: US-ASTRAZENECA-2011SE05418

PATIENT
  Sex: Male

DRUGS (1)
  1. NEXIUM [Suspect]
     Route: 048

REACTIONS (6)
  - EPISTAXIS [None]
  - HAEMOPTYSIS [None]
  - SINUS DISORDER [None]
  - MALAISE [None]
  - CONSTIPATION [None]
  - LUNG INFECTION [None]
